FAERS Safety Report 14609842 (Version 1)
Quarter: 2018Q1

REPORT INFORMATION
  Report Type: Spontaneous
  Country: US (occurrence: US)
  Receive Date: 20180307
  Receipt Date: 20180307
  Transmission Date: 20180509
  Serious: No
  Sender: FDA-Public Use
  Company Number: None

PATIENT
  Age: 55 Year
  Sex: Female
  Weight: 99 kg

DRUGS (10)
  1. AMITRIPTYLINE [Concomitant]
     Active Substance: AMITRIPTYLINE
  2. LISINOPRIL. [Concomitant]
     Active Substance: LISINOPRIL
  3. IBUPROFEN. [Concomitant]
     Active Substance: IBUPROFEN
  4. RANITIDINE. [Concomitant]
     Active Substance: RANITIDINE
  5. VITAMIN D [Concomitant]
     Active Substance: CHOLECALCIFEROL
  6. LOVASTATIN. [Concomitant]
     Active Substance: LOVASTATIN
  7. VITAMIN E [Concomitant]
     Active Substance: .ALPHA.-TOCOPHEROL
  8. VITAMIN C [Concomitant]
     Active Substance: ASCORBIC ACID
  9. VITAMIN B12 [Concomitant]
     Active Substance: CYANOCOBALAMIN
  10. CHANTIX [Suspect]
     Active Substance: VARENICLINE TARTRATE
     Indication: SMOKING CESSATION THERAPY
     Dosage: ?          QUANTITY:1 TABLET(S);?
     Route: 048
     Dates: start: 20180205, end: 20180218

REACTIONS (3)
  - Rash erythematous [None]
  - Pruritus [None]
  - Rash [None]

NARRATIVE: CASE EVENT DATE: 20180211
